FAERS Safety Report 4809908-6 (Version None)
Quarter: 2005Q4

REPORT INFORMATION
  Report Type: 
  Country: None (occurrence: None)
  Receive Date: 20051024
  Receipt Date: 20051024
  Transmission Date: 20060501
  Serious: Yes (Hospitalization)
  Sender: FDA-Public Use
  Company Number: None

PATIENT
  Age: 4 Year
  Sex: Male
  Weight: 15.8759 kg

DRUGS (1)
  1. PHENABARBATOL   30MG [Suspect]
     Indication: CONVULSION
     Dosage: 3    1    PO
     Route: 048
     Dates: start: 20050928, end: 20051017

REACTIONS (1)
  - ADVERSE DRUG REACTION [None]
